FAERS Safety Report 25573845 (Version 1)
Quarter: 2025Q3

REPORT INFORMATION
  Report Type: Spontaneous
  Country: US (occurrence: US)
  Receive Date: 20250717
  Receipt Date: 20250717
  Transmission Date: 20251020
  Serious: No
  Sender: INCYTE
  Company Number: US-EVENT-003484

PATIENT
  Age: 47 Year

DRUGS (1)
  1. OPZELURA [Suspect]
     Active Substance: RUXOLITINIB PHOSPHATE
     Indication: Product used for unknown indication
     Dosage: 1.5 PERCENT (APPLY A THIN LAYER TO AFFECTED AREA(S) TWICE DAILY AS DIRECTED)

REACTIONS (1)
  - Limb injury [Unknown]
